FAERS Safety Report 4993026-0 (Version None)
Quarter: 2006Q2

REPORT INFORMATION
  Report Type: 
  Country: None (occurrence: None)
  Receive Date: 20060504
  Receipt Date: 20060424
  Transmission Date: 20061013
  Serious: Yes (Hospitalization)
  Sender: FDA-Public Use
  Company Number: US-MERCK-0604USA03726

PATIENT
  Age: 50 Year
  Sex: Male
  Weight: 102 kg

DRUGS (7)
  1. VIOXX [Suspect]
     Indication: BACK PAIN
     Route: 048
     Dates: start: 20010101, end: 20010901
  2. VIOXX [Suspect]
     Route: 048
     Dates: start: 20010101, end: 20010901
  3. WELLBUTRIN [Concomitant]
     Route: 065
  4. NEURONTIN [Concomitant]
     Route: 065
  5. ULTRAM [Concomitant]
     Route: 065
  6. METOPROLOL [Concomitant]
     Route: 065
  7. ENALAPRIL MALEATE [Concomitant]
     Route: 065

REACTIONS (3)
  - ANXIETY [None]
  - MYOCARDIAL INFARCTION [None]
  - OVERDOSE [None]
